FAERS Safety Report 5777104-4 (Version None)
Quarter: 2008Q2

REPORT INFORMATION
  Report Type: 
  Country: None (occurrence: None)
  Receive Date: 20080617
  Receipt Date: 20080617
  Transmission Date: 20081010
  Serious: Yes (Hospitalization)
  Sender: FDA-Public Use
  Company Number: None

PATIENT
  Age: 51 Year
  Sex: Male
  Weight: 83.6 kg

DRUGS (6)
  1. CISPLATIN [Suspect]
     Indication: LARYNGEAL CANCER
     Dosage: 35MG/M2 IV
     Route: 042
  2. FLUCONAZOLE [Concomitant]
  3. GABAPENTIN [Concomitant]
  4. ONDANSETRON [Concomitant]
  5. OXYCODONE HCL [Concomitant]
  6. LEVOTHYROXINE SODIUM [Concomitant]

REACTIONS (3)
  - BLOOD MAGNESIUM DECREASED [None]
  - LETHARGY [None]
  - NAUSEA [None]
